FAERS Safety Report 7517985-7 (Version None)
Quarter: 2011Q2

REPORT INFORMATION
  Report Type: 
  Country: None (occurrence: None)
  Receive Date: 20110531
  Receipt Date: 20110531
  Transmission Date: 20111010
  Serious: No
  Sender: FDA-Public Use
  Company Number: None

PATIENT
  Sex: Female
  Weight: 78.9259 kg

DRUGS (1)
  1. COPAXONE [Suspect]
     Indication: RELAPSING-REMITTING MULTIPLE SCLEROSIS
     Dosage: 20MG DAILY SQ
     Route: 058
     Dates: start: 19981130, end: 20110526

REACTIONS (11)
  - SECRETION DISCHARGE [None]
  - NECROTISING FASCIITIS [None]
  - INJECTION SITE DISCOLOURATION [None]
  - CHEST DISCOMFORT [None]
  - MUSCULOSKELETAL DISCOMFORT [None]
  - PYREXIA [None]
  - SKIN LESION [None]
  - ERYTHEMA [None]
  - INJECTION SITE PAIN [None]
  - FEELING ABNORMAL [None]
  - ECCHYMOSIS [None]
